FAERS Safety Report 6332620-1 (Version None)
Quarter: 2009Q3

REPORT INFORMATION
  Report Type: 
  Country: None (occurrence: None)
  Receive Date: 20090828
  Receipt Date: 20090818
  Transmission Date: 20100115
  Serious: Yes (Hospitalization)
  Sender: FDA-Public Use
  Company Number: US-ALEXION-A200900622

PATIENT
  Sex: Male
  Weight: 93.8 kg

DRUGS (16)
  1. SOLIRIS [Suspect]
     Indication: PAROXYSMAL NOCTURNAL HAEMOGLOBINURIA
     Dosage: WEEKLY X 4
     Route: 042
     Dates: start: 20090619, end: 20090709
  2. SOLIRIS [Suspect]
     Dosage: 900 MG, Q2 WEEKS
     Route: 042
     Dates: start: 20090716
  3. SPIRONOLACTONE [Concomitant]
     Dosage: 25 MG, BID
  4. PLAVIX [Concomitant]
     Dosage: 25 MG, QOD
  5. CALCITRIOL [Concomitant]
     Dosage: 0.25 UG, QD
  6. SIMVASTATIN [Concomitant]
     Dosage: 40 MG, 1/2 A TAB ALTERNATING WITH A WHOLE TAB DAILY
  7. SIMVASTATIN [Concomitant]
     Dosage: 80 MG, EVERY OTHER DAY
  8. FOLIC ACID [Concomitant]
     Dosage: 1 MG, QD
  9. METOPROLOL [Concomitant]
     Dosage: 25 MG, BID
  10. ALLOPURINOL [Concomitant]
     Dosage: 150 MG, QD
  11. DEMADEX [Concomitant]
     Dosage: 20 MG, QD
  12. ALBUTEROL SULFATE [Concomitant]
     Indication: WHEEZING
     Dosage: 1.25 MG/3 ML PRN NEB SOLUTION
  13. FERREX [Concomitant]
     Dosage: 150 MG, QD
  14. AMLODIPINE [Concomitant]
     Dosage: 10 MG, QD
  15. OMEPRAZOLE [Concomitant]
     Dosage: 20 MG, QD
  16. ARANESP [Concomitant]
     Indication: HAEMOGLOBIN ABNORMAL
     Dosage: 100 MCG/0.5 ML SYRINGE WEEKLY

REACTIONS (6)
  - ANAEMIA [None]
  - CARDIAC FAILURE CHRONIC [None]
  - DIALYSIS [None]
  - FATIGUE [None]
  - HAEMOGLOBINURIA [None]
  - RENAL FAILURE [None]
